FAERS Safety Report 20131445 (Version 5)
Quarter: 2022Q4

REPORT INFORMATION
  Report Type: Report from Study
  Country: FR (occurrence: FR)
  Receive Date: 20211130
  Receipt Date: 20221025
  Transmission Date: 20230113
  Serious: Yes (Hospitalization, Other)
  Sender: FDA-Public Use
  Company Number: FR-TAKEDA-2021TUS075380

PATIENT
  Age: 8 Year
  Sex: Male

DRUGS (11)
  1. TEDUGLUTIDE [Suspect]
     Active Substance: TEDUGLUTIDE
     Indication: Short-bowel syndrome
     Dosage: 1.2 MILLIGRAM, QD
     Route: 042
     Dates: start: 20201218
  2. TEDUGLUTIDE [Suspect]
     Active Substance: TEDUGLUTIDE
     Indication: Short-bowel syndrome
     Dosage: 1.2 MILLIGRAM, QD
     Route: 042
     Dates: start: 20201218
  3. TEDUGLUTIDE [Suspect]
     Active Substance: TEDUGLUTIDE
     Indication: Short-bowel syndrome
     Dosage: 1.2 MILLIGRAM, QD
     Route: 042
     Dates: start: 20201218
  4. TEDUGLUTIDE [Suspect]
     Active Substance: TEDUGLUTIDE
     Indication: Short-bowel syndrome
     Dosage: 1.2 MILLIGRAM, QD
     Route: 042
     Dates: start: 20201218
  5. FAMOTIDINE [Concomitant]
     Active Substance: FAMOTIDINE
     Indication: Rebound acid hypersecretion
     Dosage: 20 MILLIGRAM, QD
     Route: 048
     Dates: start: 202102
  6. VANCOMYCIN [Concomitant]
     Active Substance: VANCOMYCIN
     Indication: Vascular device infection
     Dosage: 1380 MILLIGRAM
     Route: 042
     Dates: start: 20210416, end: 20210419
  7. VANCOMYCIN [Concomitant]
     Active Substance: VANCOMYCIN
     Indication: Antibiotic therapy
  8. TARGOCID [Concomitant]
     Active Substance: TEICOPLANIN
     Indication: Vascular device infection
     Dosage: UNK
     Route: 042
     Dates: start: 20210325, end: 202104
  9. TARGOCID [Concomitant]
     Active Substance: TEICOPLANIN
     Indication: Antibiotic therapy
  10. RANITIDINE [Concomitant]
     Active Substance: RANITIDINE
     Indication: Reflux gastritis
     Dosage: 150 MILLIGRAM, QD
     Route: 050
     Dates: start: 2013, end: 202012
  11. METHYLPHENIDATE HYDROCHLORIDE [Concomitant]
     Active Substance: METHYLPHENIDATE HYDROCHLORIDE
     Indication: Attention deficit hyperactivity disorder
     Dosage: 20 MILLIGRAM, QD
     Route: 048
     Dates: start: 202201

REACTIONS (1)
  - Vascular device infection [Recovered/Resolved]

NARRATIVE: CASE EVENT DATE: 20210323
